FAERS Safety Report 12574468 (Version 3)
Quarter: 2016Q3

REPORT INFORMATION
  Report Type: Spontaneous
  Country: US (occurrence: US)
  Receive Date: 20160720
  Receipt Date: 20160815
  Transmission Date: 20161109
  Serious: No
  Sender: FDA-Public Use
  Company Number: US-GLAXOSMITHKLINE-US2016097478

PATIENT
  Age: 58 Year
  Sex: Female
  Weight: 57.6 kg

DRUGS (1)
  1. BREO ELLIPTA [Suspect]
     Active Substance: FLUTICASONE FUROATE\VILANTEROL TRIFENATATE
     Indication: ASTHMA
     Dosage: 1 PUFF(S), QD
     Route: 055
     Dates: start: 20160621, end: 20160622

REACTIONS (2)
  - Bronchospasm [Unknown]
  - Bronchospasm paradoxical [Unknown]

NARRATIVE: CASE EVENT DATE: 20160621
